FAERS Safety Report 7511452-2 (Version None)
Quarter: 2011Q2

REPORT INFORMATION
  Report Type: 
  Country: None (occurrence: None)
  Receive Date: 20110531
  Receipt Date: 20110523
  Transmission Date: 20111010
  Serious: Yes (Hospitalization)
  Sender: FDA-Public Use
  Company Number: US-AMGEN-USASP2011027374

PATIENT
  Sex: Female

DRUGS (3)
  1. ZOLEDRONIC ACID [Concomitant]
  2. DOXIL                              /00055703/ [Concomitant]
  3. NEULASTA [Suspect]
     Indication: CHEMOTHERAPY
     Dosage: 6 MG, UNK
     Dates: start: 20101001

REACTIONS (1)
  - THROMBOSIS [None]
